FAERS Safety Report 9774570 (Version 7)
Quarter: 2014Q3

REPORT INFORMATION
  Report Type: Report from Study
  Country: DE (occurrence: DE)
  Receive Date: 20131220
  Receipt Date: 20140820
  Transmission Date: 20150326
  Serious: Yes (Hospitalization, Other)
  Sender: FDA-Public Use
  Company Number: DE-ROCHE-1309015

PATIENT
  Age: 72 Year
  Sex: Male
  Weight: 110 kg

DRUGS (6)
  1. BISOPROLOL [Concomitant]
     Active Substance: BISOPROLOL
     Route: 065
     Dates: start: 2008
  2. VEMURAFENIB [Suspect]
     Active Substance: VEMURAFENIB
     Dosage: RESTARTED
     Route: 048
     Dates: start: 20131202
  3. L-THYROXIN [Concomitant]
     Active Substance: LEVOTHYROXINE SODIUM
     Route: 065
     Dates: start: 2008
  4. FUROSEMIDE. [Concomitant]
     Active Substance: FUROSEMIDE
     Route: 065
     Dates: start: 20130426
  5. VEMURAFENIB [Suspect]
     Active Substance: VEMURAFENIB
     Indication: MALIGNANT MELANOMA
     Dosage: DATE OF LAST DOSE 29/NOV/2013
     Route: 048
     Dates: start: 20120222, end: 20131129
  6. TROMCARDIN [Concomitant]
     Route: 065
     Dates: start: 20130426

REACTIONS (2)
  - Infected dermal cyst [Recovered/Resolved]
  - Squamous cell carcinoma of skin [Recovered/Resolved]

NARRATIVE: CASE EVENT DATE: 20120516
